FAERS Safety Report 8898786 (Version 1)
Quarter: 2012Q4

REPORT INFORMATION
  Report Type: 
  Country: US (occurrence: US)
  Receive Date: 20121108
  Receipt Date: 20121108
  Transmission Date: 20130627
  Serious: No
  Sender: FDA-Public Use
  Company Number: US-AMGEN-USASP2012033062

PATIENT
  Age: 68 Year
  Sex: Female

DRUGS (2)
  1. ENBREL [Suspect]
     Indication: PSORIATIC ARTHROPATHY
     Dosage: 40 mg, q2wk
     Dates: start: 20120322, end: 201206
  2. HUMIRA [Concomitant]
     Dosage: UNK

REACTIONS (2)
  - Rash [Unknown]
  - Streptococcal infection [Unknown]
